FAERS Safety Report 17547419 (Version 2)
Quarter: 2020Q3

REPORT INFORMATION
  Report Type: Spontaneous
  Country: US (occurrence: US)
  Receive Date: 20200316
  Receipt Date: 20200820
  Transmission Date: 20201102
  Serious: Yes (Death, Hospitalization, Other)
  Sender: FDA-Public Use
  Company Number: US-TAKEDA-2020TUS014525

PATIENT

DRUGS (12)
  1. TIZADINE [Concomitant]
     Active Substance: TIZANIDINE HYDROCHLORIDE
     Indication: MUSCLE SPASMS
     Dosage: UNK
     Dates: start: 20180831, end: 2019
  2. AURYXIA [Concomitant]
     Active Substance: TETRAFERRIC TRICITRATE DECAHYDRATE
     Indication: CHRONIC KIDNEY DISEASE
     Dosage: UNK
     Dates: start: 20190405, end: 201908
  3. CITALOPRAM [Concomitant]
     Active Substance: CITALOPRAM HYDROBROMIDE
     Indication: DEPRESSION
     Dosage: UNK
     Dates: start: 20180829, end: 2019
  4. OMEGA 3                            /01333901/ [Concomitant]
     Active Substance: FISH OIL\TOCOPHEROL
     Indication: BLOOD TRIGLYCERIDES INCREASED
     Dosage: UNK
     Dates: start: 20131022, end: 2019
  5. VELTASSA [Concomitant]
     Active Substance: PATIROMER
     Indication: BLOOD POTASSIUM INCREASED
     Dosage: UNK
     Dates: start: 20181115, end: 2019
  6. GABAPENTIN. [Concomitant]
     Active Substance: GABAPENTIN
     Indication: SEIZURE
     Dosage: UNK
     Dates: start: 20131022, end: 2019
  7. TRADJENTA [Concomitant]
     Active Substance: LINAGLIPTIN
     Indication: DIABETES MELLITUS
     Dosage: UNK
     Dates: start: 20180831
  8. SENSIPAR [Concomitant]
     Active Substance: CINACALCET HYDROCHLORIDE
     Dosage: UNK
     Dates: start: 20190509, end: 201908
  9. ULORIC [Suspect]
     Active Substance: FEBUXOSTAT
     Indication: GOUT
     Dosage: 40 MILLIGRAM
     Route: 048
     Dates: start: 20131022, end: 20190522
  10. AMLODIPINE [Concomitant]
     Active Substance: AMLODIPINE BESYLATE
     Indication: HYPERTENSION
     Dosage: UNK
     Dates: start: 20180723, end: 2019
  11. ATORVASTATIN [Concomitant]
     Active Substance: ATORVASTATIN
     Indication: BLOOD CHOLESTEROL INCREASED
     Dosage: UNK
     Dates: start: 20131211, end: 2019
  12. LUNESTA [Concomitant]
     Active Substance: ESZOPICLONE
     Indication: INSOMNIA
     Dosage: UNK
     Dates: start: 20160419

REACTIONS (4)
  - Arrhythmia [Fatal]
  - Cerebrovascular accident [Unknown]
  - Gastric haemorrhage [Fatal]
  - Myocardial infarction [Unknown]

NARRATIVE: CASE EVENT DATE: 2012
